FAERS Safety Report 6197750-6 (Version None)
Quarter: 2009Q2

REPORT INFORMATION
  Report Type: 
  Country: None (occurrence: None)
  Receive Date: 20090521
  Receipt Date: 20090512
  Transmission Date: 20091009
  Serious: Yes (Life-Threatening, Hospitalization)
  Sender: FDA-Public Use
  Company Number: HR-ELI_LILLY_AND_COMPANY-HR200905002657

PATIENT
  Sex: Male

DRUGS (11)
  1. ZYPREXA [Suspect]
     Indication: PSYCHOTIC DISORDER
  2. ZYPREXA [Suspect]
     Dosage: 5 MG, 2/D
     Route: 048
     Dates: start: 20080417
  3. TRAMADOL HCL [Concomitant]
     Dates: start: 20080728
  4. NORMABEL [Concomitant]
     Dosage: 10 MG, 4/D
     Dates: start: 20081126, end: 20090316
  5. PRAZINE [Concomitant]
     Dates: start: 20081101
  6. PRAZINE [Concomitant]
     Dosage: 100 MG, OTHER
     Dates: start: 20090101, end: 20090316
  7. SANVAL/00914901/ [Concomitant]
     Dates: start: 20090311, end: 20090316
  8. LANITOP [Concomitant]
  9. BISOPROLOL FUMARATE [Concomitant]
  10. TRITACE [Concomitant]
     Dosage: 5 MG, UNK
  11. FURSEMID [Concomitant]

REACTIONS (10)
  - ANXIETY [None]
  - APATHY [None]
  - DEPRESSION [None]
  - EXTRAPYRAMIDAL DISORDER [None]
  - INSOMNIA [None]
  - PARKINSONISM [None]
  - SOMATISATION DISORDER [None]
  - STUPOR [None]
  - SUICIDAL IDEATION [None]
  - SUICIDE ATTEMPT [None]
